FAERS Safety Report 8301930-0 (Version None)
Quarter: 2012Q2

REPORT INFORMATION
  Report Type: 
  Country: None (occurrence: None)
  Receive Date: 20120420
  Receipt Date: 20111031
  Transmission Date: 20120825
  Serious: Yes (Other)
  Sender: FDA-Public Use
  Company Number: IL-ROCHE-1008403

PATIENT
  Sex: Female
  Weight: 125 kg

DRUGS (1)
  1. ACTEMRA [Suspect]
     Indication: PRODUCT USED FOR UNKNOWN INDICATION
     Dosage: 1000 MG PER INFUSION FOR AT LEAST 5 CONSECUTIVE INFUSIONS.

REACTIONS (1)
  - OVERDOSE [None]
